FAERS Safety Report 8189146-2 (Version None)
Quarter: 2012Q1

REPORT INFORMATION
  Report Type: 
  Country: None (occurrence: None)
  Receive Date: 20120307
  Receipt Date: 20120229
  Transmission Date: 20120608
  Serious: Yes (Hospitalization, Disabling)
  Sender: FDA-Public Use
  Company Number: FR-ELI_LILLY_AND_COMPANY-FR201202008180

PATIENT
  Sex: Female

DRUGS (4)
  1. HUMALOG MIX 75/25 [Suspect]
     Indication: TYPE 2 DIABETES MELLITUS
     Dosage: 42 UL, QD
     Route: 058
     Dates: start: 20100604
  2. EFFEXOR [Concomitant]
     Indication: DEPRESSION
     Dosage: 75 MG, QD
     Route: 048
     Dates: start: 20090522
  3. HALDOL [Concomitant]
     Indication: BIPOLAR DISORDER
     Dosage: 4 DF, QD
     Route: 048
     Dates: start: 20100805
  4. ARICEPT [Concomitant]
     Indication: DEMENTIA
     Dosage: 10 MG, QD
     Route: 048
     Dates: start: 20111017, end: 20111130

REACTIONS (2)
  - FALL [None]
  - ANKLE FRACTURE [None]
